FAERS Safety Report 9120499 (Version 2)
Quarter: 2013Q2

REPORT INFORMATION
  Report Type: Report from Study
  Country: JP (occurrence: JP)
  Receive Date: 20130226
  Receipt Date: 20130622
  Transmission Date: 20140414
  Serious: Yes (Hospitalization)
  Sender: FDA-Public Use
  Company Number: JP-ROCHE-1181217

PATIENT
  Age: 81 Year
  Sex: Male

DRUGS (14)
  1. METHOXY POLYETHYLENE GLYCOL-EPOETIN BETA [Suspect]
     Indication: NEPHROGENIC ANAEMIA
     Route: 058
     Dates: start: 20120306, end: 20120414
  2. METHOXY POLYETHYLENE GLYCOL-EPOETIN BETA [Suspect]
     Indication: NEPHROGENIC ANAEMIA
     Route: 058
     Dates: start: 20120512, end: 20120804
  3. ARTIST [Concomitant]
     Indication: HYPERTENSION
     Route: 048
     Dates: start: 20120317, end: 20120929
  4. MICARDIS [Concomitant]
     Indication: HYPERTENSION
     Route: 048
     Dates: start: 20120306, end: 20120929
  5. LIVALO [Concomitant]
     Route: 048
     Dates: start: 20120306, end: 20120929
  6. AMLODIPINE [Concomitant]
     Indication: HYPERTENSION
     Route: 048
     Dates: start: 20120306, end: 20120707
  7. LASIX [Concomitant]
     Indication: HYPERTENSION
     Route: 048
     Dates: start: 20120306, end: 20120929
  8. LINAGLIPTIN [Concomitant]
     Indication: DIABETES MELLITUS
     Route: 048
     Dates: start: 20120306, end: 20120929
  9. JZOLOFT [Concomitant]
     Indication: DEPRESSION
     Route: 048
     Dates: start: 20120317, end: 20120317
  10. HALCION [Concomitant]
     Route: 048
     Dates: start: 20120317, end: 20120929
  11. TANKARU [Concomitant]
     Route: 048
     Dates: start: 20120306, end: 20120929
  12. ALLEGRA [Concomitant]
     Route: 048
     Dates: start: 20120512, end: 20120929
  13. REMITCH [Concomitant]
     Route: 048
     Dates: start: 20120707, end: 20120929
  14. EURAX [Concomitant]
     Dosage: TAKEN AS NEEDED
     Route: 003
     Dates: start: 20120512, end: 20120512

REACTIONS (2)
  - Depression [Unknown]
  - Hypertension [Unknown]
